FAERS Safety Report 20405161 (Version 1)
Quarter: 2022Q1

REPORT INFORMATION
  Report Type: Spontaneous
  Country: FR (occurrence: FR)
  Receive Date: 20220131
  Receipt Date: 20220131
  Transmission Date: 20220423
  Serious: Yes (Hospitalization, Other)
  Sender: FDA-Public Use
  Company Number: FR-ALVOGEN-2022-ALVOGEN-118229

PATIENT
  Age: 48 Year
  Sex: Female

DRUGS (1)
  1. DISULFIRAM [Suspect]
     Active Substance: DISULFIRAM
     Indication: Alcoholism

REACTIONS (4)
  - Wernicke^s encephalopathy [Recovering/Resolving]
  - Polyneuropathy [Not Recovered/Not Resolved]
  - Toxicity to various agents [Recovering/Resolving]
  - Wrong dose [Unknown]
